FAERS Safety Report 15886545 (Version 4)
Quarter: 2019Q1

REPORT INFORMATION
  Report Type: Report from Study
  Country: US (occurrence: US)
  Receive Date: 20190129
  Receipt Date: 20190328
  Transmission Date: 20190417
  Serious: Yes (Hospitalization, Other)
  Sender: FDA-Public Use
  Company Number: US-ACTELION-A-NJ2018-176928

PATIENT
  Age: 20 Year
  Sex: Female
  Weight: 43.54 kg

DRUGS (3)
  1. OXYGEN. [Concomitant]
     Active Substance: OXYGEN
  2. OPSUMIT [Suspect]
     Active Substance: MACITENTAN
     Indication: PULMONARY ARTERIAL HYPERTENSION
     Dosage: 10 MG, QD
     Route: 048
     Dates: start: 20180810
  3. ADCIRCA [Concomitant]
     Active Substance: TADALAFIL

REACTIONS (16)
  - Pneumonia [Not Recovered/Not Resolved]
  - Dyspnoea exertional [Unknown]
  - Pyrexia [Unknown]
  - Body temperature increased [Unknown]
  - Palpitations [Unknown]
  - Cough [Unknown]
  - Loss of personal independence in daily activities [Unknown]
  - Loss of consciousness [Unknown]
  - Feeling abnormal [Unknown]
  - Asthenia [Unknown]
  - Seizure [Unknown]
  - Dyspnoea [Unknown]
  - Oxygen consumption increased [Unknown]
  - Fluid retention [Unknown]
  - Pain in extremity [Unknown]
  - Malaise [Unknown]

NARRATIVE: CASE EVENT DATE: 20190217
